FAERS Safety Report 8676147 (Version 5)
Quarter: 2014Q1

REPORT INFORMATION
  Report Type: Report from Study
  Country: JP (occurrence: JP)
  Receive Date: 20120720
  Receipt Date: 20140204
  Transmission Date: 20141002
  Serious: Yes (Other)
  Sender: FDA-Public Use
  Company Number: JP-VERTEX PHARMACEUTICALS INC.-AE-2012-010479

PATIENT
  Age: 54 Year
  Sex: Male

DRUGS (13)
  1. VX-950 (TELAPREVIR) [Suspect]
     Indication: CHRONIC HEPATITIS C
     Dosage: 2250 MG, QD
     Route: 048
     Dates: start: 20120703, end: 20120704
  2. VX-950 (TELAPREVIR) [Suspect]
     Dosage: 2000 MG, QD
     Route: 048
     Dates: start: 20120705, end: 20120711
  3. VX-950 (TELAPREVIR) [Suspect]
     Dosage: 1750 MG, QD
     Route: 048
     Dates: start: 20120712, end: 20120924
  4. RIBAVIRIN [Suspect]
     Indication: CHRONIC HEPATITIS C
     Dosage: 800 MG, QD
     Route: 048
     Dates: start: 20120703, end: 20120711
  5. RIBAVIRIN [Suspect]
     Dosage: 600 MG, QD
     Route: 048
     Dates: start: 20120712, end: 20120813
  6. RIBAVIRIN [Suspect]
     Dosage: 400 MG, QD
     Route: 048
     Dates: start: 20120814, end: 20120820
  7. RIBAVIRIN [Suspect]
     Dosage: 600 MG, QD
     Route: 048
     Dates: start: 20120821
  8. PEGINTERFERON ALFA-2B [Suspect]
     Indication: CHRONIC HEPATITIS C
     Dosage: 1.5 ?G/KG, QW
     Route: 058
     Dates: start: 20120703, end: 20120703
  9. PEGINTERFERON ALFA-2B [Suspect]
     Dosage: 1.3 ?G/KG, QW
     Route: 058
     Dates: start: 20120710, end: 20120731
  10. PEGINTERFERON ALFA-2B [Suspect]
     Dosage: 1.0 ?G/KG, QW, 60 MCG/BODY
     Route: 058
     Dates: start: 20120807
  11. LOXONIN [Concomitant]
     Dosage: 60 MG, PRN
     Route: 048
     Dates: start: 20120703
  12. MUCOSTA [Concomitant]
     Dosage: 100 MG, PRN
     Route: 048
     Dates: start: 20120703
  13. PARIET [Concomitant]
     Dosage: 10 MG, QD
     Route: 048
     Dates: start: 20120712, end: 20121023

REACTIONS (1)
  - Loss of consciousness [Recovered/Resolved]
